FAERS Safety Report 21096208 (Version 2)
Quarter: 2022Q3

REPORT INFORMATION
  Report Type: Spontaneous
  Country: DE (occurrence: None)
  Receive Date: 20220718
  Receipt Date: 20220822
  Transmission Date: 20221027
  Serious: Yes (Life-Threatening, Hospitalization)
  Sender: FDA-Public Use
  Company Number: DE-ROCHE-3138154

PATIENT
  Age: 50 Year
  Sex: Male

DRUGS (2)
  1. HEMLIBRA [Suspect]
     Active Substance: EMICIZUMAB-KXWH
     Indication: Haemophilia A without inhibitors
     Route: 058
  2. ATRIPLA [Concomitant]
     Active Substance: EFAVIRENZ\EMTRICITABINE\TENOFOVIR DISOPROXIL FUMARATE
     Indication: HIV infection
     Dosage: 600/200/245, START AND END DATE UNKNOWN
     Route: 048

REACTIONS (3)
  - Brain stem haemorrhage [Not Recovered/Not Resolved]
  - Brain stem infarction [Recovered/Resolved with Sequelae]
  - Coagulation factor VIII level increased [Unknown]

NARRATIVE: CASE EVENT DATE: 20220706
